FAERS Safety Report 19768338 (Version 1)
Quarter: 2021Q3

REPORT INFORMATION
  Report Type: Spontaneous
  Country: DE (occurrence: DE)
  Receive Date: 20210830
  Receipt Date: 20210830
  Transmission Date: 20211014
  Serious: Yes (Other)
  Sender: FDA-Public Use
  Company Number: DE-ANIPHARMA-2021-DE-000189

PATIENT
  Sex: Female

DRUGS (4)
  1. VALSARTAN 1A PHARMA [Suspect]
     Active Substance: VALSARTAN
     Dosage: 160 MG UNK
     Route: 065
     Dates: start: 20160722, end: 201809
  2. CANDESARTAN. [Suspect]
     Active Substance: CANDESARTAN
     Indication: PRODUCT USED FOR UNKNOWN INDICATION
     Dosage: 16 MG UNK
     Route: 048
  3. VALSARTAN HEXAL [Suspect]
     Active Substance: VALSARTAN
     Dosage: 160 MG DAILY
     Route: 065
     Dates: start: 2012, end: 201407
  4. VALSARTAN. [Suspect]
     Active Substance: VALSARTAN
     Dosage: 160 MG UNK / 160 MG UNK / 160 MG UNK
     Route: 065
     Dates: start: 201407

REACTIONS (10)
  - Hypertonic bladder [Not Recovered/Not Resolved]
  - Emotional distress [Unknown]
  - Impaired quality of life [Unknown]
  - Oedema [Unknown]
  - Elephantiasis [Unknown]
  - Sleep apnoea syndrome [Not Recovered/Not Resolved]
  - Vitamin D deficiency [Unknown]
  - Wound [Unknown]
  - Lipoedema [Unknown]
  - Hepatomegaly [Unknown]

NARRATIVE: CASE EVENT DATE: 20170307
